FAERS Safety Report 8564902-7 (Version None)
Quarter: 2012Q3

REPORT INFORMATION
  Report Type: 
  Country: None (occurrence: None)
  Receive Date: 20120803
  Receipt Date: 20120731
  Transmission Date: 20120928
  Serious: Yes (Death)
  Sender: FDA-Public Use
  Company Number: US-CELGENEUS-163-21880-12062787

PATIENT
  Sex: Male

DRUGS (6)
  1. REVLIMID [Suspect]
     Indication: MULTIPLE MYELOMA
     Dosage: 10 MILLIGRAM
     Route: 048
     Dates: start: 20120309, end: 20120601
  2. ASPIRIN [Concomitant]
     Indication: CORONARY ARTERY DISEASE
     Dosage: 325 MILLIGRAM
     Route: 048
  3. FLOMAX [Concomitant]
     Dosage: .4 MILLIGRAM
     Route: 048
  4. MECLIZINE [Concomitant]
     Indication: VERTIGO
     Dosage: 25 MILLIGRAM
     Route: 048
  5. ARICEPT [Concomitant]
     Indication: DEMENTIA
     Dosage: 10 MILLIGRAM
     Route: 048
  6. ATENOLOL [Concomitant]
     Indication: HYPERTENSION
     Dosage: 25 MILLIGRAM
     Route: 048

REACTIONS (1)
  - MULTIPLE MYELOMA [None]
